FAERS Safety Report 19073359 (Version 2)
Quarter: 2021Q2

REPORT INFORMATION
  Report Type: Report from Study
  Country: BR (occurrence: BR)
  Receive Date: 20210330
  Receipt Date: 20210407
  Transmission Date: 20210717
  Serious: No
  Sender: FDA-Public Use
  Company Number: BR-TAKEDA-BR202011970

PATIENT
  Age: 48 Year
  Sex: Female
  Weight: 89.8 kg

DRUGS (8)
  1. ICATIBANT [Suspect]
     Active Substance: ICATIBANT ACETATE
     Dosage: UNK
     Route: 065
     Dates: start: 201902
  2. VITAMINS NOS [Concomitant]
     Active Substance: VITAMINS
  3. ICATIBANT [Suspect]
     Active Substance: ICATIBANT ACETATE
     Dosage: UNK
     Route: 065
     Dates: start: 201902
  4. ICATIBANT [Suspect]
     Active Substance: ICATIBANT ACETATE
     Indication: HEREDITARY ANGIOEDEMA
     Dosage: 30 MG / 10 MG / ML
     Route: 065
  5. ICATIBANT [Suspect]
     Active Substance: ICATIBANT ACETATE
     Dosage: 30 MG / 10 MG / ML
     Route: 065
     Dates: start: 20200308
  6. ICATIBANT [Suspect]
     Active Substance: ICATIBANT ACETATE
     Dosage: 30 MG / 10 MG / ML
     Route: 065
     Dates: start: 20200308
  7. ICATIBANT [Suspect]
     Active Substance: ICATIBANT ACETATE
     Indication: HEREDITARY ANGIOEDEMA
     Dosage: 30 MG / 10 MG / ML
     Route: 065
  8. OXANDROLONE. [Concomitant]
     Active Substance: OXANDROLONE
     Indication: HEREDITARY ANGIOEDEMA
     Route: 065

REACTIONS (3)
  - Weight increased [Recovered/Resolved]
  - Stress [Recovered/Resolved]
  - Oropharyngeal discomfort [Recovered/Resolved]

NARRATIVE: CASE EVENT DATE: 20210302
